FAERS Safety Report 5052838-8 (Version None)
Quarter: 2006Q3

REPORT INFORMATION
  Report Type: 
  Country: None (occurrence: None)
  Receive Date: 20060706
  Receipt Date: 20060622
  Transmission Date: 20061208
  Serious: No
  Sender: FDA-Public Use
  Company Number: 2006BH010487

PATIENT
  Age: 53 Year
  Sex: Female
  Weight: 78 kg

DRUGS (1)
  1. FIBRIN SEALANT TISSEL VH KIT [Suspect]
     Indication: SURGERY
     Dates: start: 20060523

REACTIONS (1)
  - PNEUMOPERITONEUM [None]
